FAERS Safety Report 8121289-1 (Version None)
Quarter: 2012Q1

REPORT INFORMATION
  Report Type: 
  Country: None (occurrence: None)
  Receive Date: 20120208
  Receipt Date: 20120201
  Transmission Date: 20120608
  Serious: Yes (Death)
  Sender: FDA-Public Use
  Company Number: US-CELGENEUS-163-21880-11113630

PATIENT
  Sex: Male

DRUGS (6)
  1. ESOMEPRAZOLE [Concomitant]
     Dosage: 40 MILLIGRAM
     Route: 048
     Dates: end: 20111101
  2. REVLIMID [Suspect]
     Indication: NON-HODGKIN'S LYMPHOMA
     Dosage: 20 MILLIGRAM
     Route: 048
     Dates: start: 20111013, end: 20111024
  3. LOSARTAN POTASSIUM [Concomitant]
     Indication: HYPERTENSION
     Route: 065
     Dates: end: 20111101
  4. COUMADIN [Concomitant]
     Dosage: 5 MILLIGRAM
     Route: 048
     Dates: start: 20111013, end: 20111030
  5. FOLIC ACID [Concomitant]
     Dosage: 1 MILLIGRAM
     Route: 048
     Dates: end: 20111101
  6. REVLIMID [Suspect]
     Dosage: 10 MILLIGRAM
     Route: 048
     Dates: start: 20111024, end: 20111231

REACTIONS (1)
  - NON-HODGKIN'S LYMPHOMA [None]
